FAERS Safety Report 19395525 (Version 1)
Quarter: 2021Q2

REPORT INFORMATION
  Report Type: Spontaneous
  Country: US (occurrence: US)
  Receive Date: 20210609
  Receipt Date: 20210609
  Transmission Date: 20210717
  Serious: Yes (Hospitalization)
  Sender: FDA-Public Use
  Company Number: NVSC2021US125675

PATIENT
  Sex: Female

DRUGS (1)
  1. VOTRIENT [Suspect]
     Active Substance: PAZOPANIB HYDROCHLORIDE
     Indication: PRODUCT USED FOR UNKNOWN INDICATION
     Dosage: UNK
     Route: 065

REACTIONS (8)
  - Decreased appetite [Unknown]
  - Taste disorder [Unknown]
  - Chromaturia [Unknown]
  - Asthenia [Unknown]
  - Blood pressure increased [Unknown]
  - Lethargy [Unknown]
  - Fatigue [Unknown]
  - Blood sodium decreased [Not Recovered/Not Resolved]
